FAERS Safety Report 5883787-0 (Version None)
Quarter: 2008Q3

REPORT INFORMATION
  Report Type: 
  Country: None (occurrence: None)
  Receive Date: 20080915
  Receipt Date: 20080911
  Transmission Date: 20090109
  Serious: Yes (Death, Life-Threatening, Hospitalization, Disabling)
  Sender: FDA-Public Use
  Company Number: CA-BRISTOL-MYERS SQUIBB COMPANY-14167027

PATIENT
  Age: 75 Year
  Sex: Female

DRUGS (3)
  1. ORENCIA [Suspect]
     Indication: RHEUMATOID ARTHRITIS
     Dosage: 26APR07,10MAY,24MAY,19JUN,19JUL,14AUG,11SEP,9OCT,6NOV,4DEC,28DEC,5FEB08,4MAR,14APR,15MAY;Q4 WEEKS
     Route: 042
     Dates: start: 20070426
  2. METHOTREXATE [Concomitant]
     Route: 058
  3. PREDNISONE TAB [Concomitant]

REACTIONS (5)
  - CHEILITIS [None]
  - HAEMOGLOBIN DECREASED [None]
  - HYPOTENSION [None]
  - PNEUMONIA [None]
  - URINARY TRACT INFECTION [None]
